FAERS Safety Report 7119521-6 (Version None)
Quarter: 2010Q4

REPORT INFORMATION
  Report Type: 
  Country: None (occurrence: None)
  Receive Date: 20101123
  Receipt Date: 20101110
  Transmission Date: 20110411
  Serious: Yes (Death, Hospitalization)
  Sender: FDA-Public Use
  Company Number: DE-AMGEN-DEUSP2010001924

PATIENT

DRUGS (1)
  1. NEUPOGEN [Suspect]
     Indication: NEUTROPENIA
     Dosage: UNK UNK, QD
     Route: 058
     Dates: start: 19900913, end: 19920609

REACTIONS (10)
  - ANAEMIA [None]
  - DEATH [None]
  - GRANULOCYTOPENIA [None]
  - HEPATOSPLENOMEGALY [None]
  - HYPERTRIGLYCERIDAEMIA [None]
  - LEUKOPENIA [None]
  - LYMPHADENOPATHY [None]
  - PLEOCYTOSIS [None]
  - PYREXIA [None]
  - SEPSIS [None]
